FAERS Safety Report 8763653 (Version 1)
Quarter: 2012Q4

REPORT INFORMATION
  Report Type: Spontaneous
  Country: US (occurrence: None)
  Receive Date: 20120831
  Receipt Date: 20120831
  Transmission Date: 20130627
  Serious: Yes (Other)
  Sender: FDA-Public Use
  Company Number: None

PATIENT
  Age: 78 Year
  Sex: Male
  Weight: 77.57 kg

DRUGS (1)
  1. CHILDREN CHEWABLE ASPIRIN [Suspect]
     Route: 048
     Dates: start: 20120518, end: 20120710

REACTIONS (1)
  - Renal impairment [None]
